FAERS Safety Report 18169962 (Version 1)
Quarter: 2020Q3

REPORT INFORMATION
  Report Type: Spontaneous
  Country: US (occurrence: US)
  Receive Date: 20200819
  Receipt Date: 20200819
  Transmission Date: 20201103
  Serious: Yes (Life-Threatening, Hospitalization)
  Sender: FDA-Public Use
  Company Number: None

PATIENT
  Age: 34 Year
  Sex: Female
  Weight: 77.1 kg

DRUGS (1)
  1. CLEAN LIFE HAND SANITIZER [Suspect]
     Active Substance: ALCOHOL
     Indication: ALCOHOL ABUSE

REACTIONS (5)
  - Intentional product use issue [None]
  - Exposure via ingestion [None]
  - Alcohol poisoning [None]
  - Blood methanol increased [None]
  - Haemodialysis [None]

NARRATIVE: CASE EVENT DATE: 20200818
